FAERS Safety Report 6599626-9 (Version None)
Quarter: 2010Q1

REPORT INFORMATION
  Report Type: 
  Country: None (occurrence: None)
  Receive Date: 20100217
  Receipt Date: 20100205
  Transmission Date: 20100710
  Serious: Yes (Hospitalization)
  Sender: FDA-Public Use
  Company Number: 237904K09USA

PATIENT
  Age: 55 Year
  Sex: Female
  Weight: 113 kg

DRUGS (11)
  1. REBIF [Suspect]
     Indication: MULTIPLE SCLEROSIS
     Dosage: 44 MCG, 3 IN 1 WEEKS, SUBCUTANEOUS
     Route: 058
     Dates: start: 20070501
  2. DIOVAN [Concomitant]
  3. ATENOLOL [Concomitant]
  4. CLONIDINE [Concomitant]
  5. METFORMIN HCL [Concomitant]
  6. GLIPIZIDE [Concomitant]
  7. ZYRTEC (CETIRIZINE HYRDOCHLORIDE) [Concomitant]
  8. HYDROCODONE BITARTRATE [Concomitant]
  9. LASIX [Concomitant]
  10. SIMVASTATIN [Concomitant]
  11. ACIPHEX [Concomitant]

REACTIONS (6)
  - ARTHRALGIA [None]
  - CHONDROPATHY [None]
  - GAIT DISTURBANCE [None]
  - OEDEMA PERIPHERAL [None]
  - OSTEITIS DEFORMANS [None]
  - OSTEOARTHRITIS [None]
